FAERS Safety Report 12860668 (Version 4)
Quarter: 2017Q3

REPORT INFORMATION
  Report Type: Spontaneous
  Country: DE (occurrence: DE)
  Receive Date: 20161019
  Receipt Date: 20170720
  Transmission Date: 20171127
  Serious: Yes (Other)
  Sender: FDA-Public Use
  Company Number: DE-FERRINGPH-2016FE05471

PATIENT

DRUGS (1)
  1. ZOMACTON [Suspect]
     Active Substance: SOMATROPIN
     Indication: GROWTH HORMONE DEFICIENCY
     Dosage: 0.034 MG/KG, DAILY
     Route: 058
     Dates: start: 20150206

REACTIONS (1)
  - Osteochondroma [Recovering/Resolving]

NARRATIVE: CASE EVENT DATE: 20160822
